FAERS Safety Report 19974683 (Version 10)
Quarter: 2024Q1

REPORT INFORMATION
  Report Type: Report from Study
  Country: US (occurrence: US)
  Receive Date: 20211020
  Receipt Date: 20240119
  Transmission Date: 20240410
  Serious: Yes (Death, Hospitalization, Other)
  Sender: FDA-Public Use
  Company Number: US-TAKEDA-2021TUS064041

PATIENT
  Age: 91 Year
  Sex: Male
  Weight: 77 kg

DRUGS (2)
  1. MOBOCERTINIB [Suspect]
     Active Substance: MOBOCERTINIB
     Indication: Lung neoplasm malignant
     Dosage: 80 MILLIGRAM, QD
     Route: 048
     Dates: start: 20210601
  2. MOBOCERTINIB [Suspect]
     Active Substance: MOBOCERTINIB
     Indication: Metastases to lung
     Dosage: 80 MILLIGRAM, QD
     Route: 048
     Dates: start: 202106

REACTIONS (12)
  - Death [Fatal]
  - Pneumonia [Unknown]
  - Dyspepsia [Unknown]
  - Nasopharyngitis [Recovered/Resolved]
  - Nasal congestion [Unknown]
  - Cough [Unknown]
  - Pollakiuria [Unknown]
  - Illness [Unknown]
  - Feeling abnormal [Unknown]
  - Rash papular [Unknown]
  - Diarrhoea [Unknown]
  - Product dose omission issue [Unknown]

NARRATIVE: CASE EVENT DATE: 20230117
